FAERS Safety Report 22207545 (Version 4)
Quarter: 2024Q1

REPORT INFORMATION
  Report Type: Report from Study
  Country: CN (occurrence: CN)
  Receive Date: 20230413
  Receipt Date: 20240110
  Transmission Date: 20240410
  Serious: Yes (Hospitalization, Other)
  Sender: FDA-Public Use
  Company Number: CN-TAKEDA-2023TUS030092

PATIENT
  Age: 36 Year
  Sex: Male
  Weight: 65 kg

DRUGS (16)
  1. VEDOLIZUMAB [Suspect]
     Active Substance: VEDOLIZUMAB
     Indication: Colitis ulcerative
     Dosage: 300 MILLIGRAM
     Route: 042
     Dates: start: 20220824
  2. SULFASALAZINE [Concomitant]
     Active Substance: SULFASALAZINE
     Indication: Inflammatory bowel disease
     Dosage: 1 GRAM, QID
     Route: 048
     Dates: start: 20220812, end: 20230120
  3. SULFASALAZINE [Concomitant]
     Active Substance: SULFASALAZINE
     Dosage: 1 GRAM, TID
     Route: 048
     Dates: start: 20230121, end: 20231030
  4. SULFASALAZINE [Concomitant]
     Active Substance: SULFASALAZINE
     Dosage: 1 GRAM, BID
     Route: 048
     Dates: start: 20231031
  5. BACILLUS LICHENIFORMIS CAPSULE,LIVE [Concomitant]
     Indication: Inflammatory bowel disease
     Dosage: 0.5 GRAM, TID
     Route: 048
     Dates: start: 202206
  6. FOLIC ACID [Concomitant]
     Active Substance: FOLIC ACID
     Indication: Nutritional supplementation
     Dosage: 5 MILLIGRAM, QD
     Route: 048
     Dates: start: 202210, end: 202302
  7. FOLIC ACID [Concomitant]
     Active Substance: FOLIC ACID
     Indication: Vitamin supplementation
     Dosage: 5 MILLIGRAM, TID
     Route: 048
     Dates: start: 20230331, end: 20230401
  8. FOLIC ACID [Concomitant]
     Active Substance: FOLIC ACID
     Dosage: 5 MILLIGRAM, QD
     Route: 048
     Dates: start: 20230402
  9. DEXTROSE [Concomitant]
     Active Substance: DEXTROSE\DEXTROSE MONOHYDRATE
     Indication: Fluid imbalance
     Dosage: 500 MILLILITER
     Route: 042
     Dates: start: 20230331, end: 20230401
  10. DEXTROSE\SODIUM CHLORIDE [Concomitant]
     Active Substance: DEXTROSE\SODIUM CHLORIDE
     Indication: Fluid imbalance
     Dosage: 500 MILLILITER, BID
     Route: 042
     Dates: start: 20230402, end: 20230404
  11. DEXTROSE\SODIUM CHLORIDE [Concomitant]
     Active Substance: DEXTROSE\SODIUM CHLORIDE
     Dosage: 500 MILLILITER
     Route: 042
     Dates: start: 20230407, end: 20230407
  12. SODIUM CHLORIDE [Concomitant]
     Active Substance: SODIUM CHLORIDE
     Indication: Fluid imbalance
     Dosage: 500 MILLILITER, QD
     Route: 042
     Dates: start: 20230402, end: 20230404
  13. Sodium acetate ringer [Concomitant]
     Indication: Fluid imbalance
     Dosage: 500 MILLILITER, BID
     Route: 042
     Dates: start: 20230406, end: 20230406
  14. Sodium acetate ringer [Concomitant]
     Dosage: 500 MILLILITER, QD
     Route: 042
     Dates: start: 20230407, end: 20230407
  15. POTASSIUM CHLORIDE [Concomitant]
     Active Substance: POTASSIUM CHLORIDE
     Indication: Mineral supplementation
     Dosage: 1.5 GRAM, BID
     Route: 042
     Dates: start: 20230406, end: 20230406
  16. AMOXICILLIN [Concomitant]
     Active Substance: AMOXICILLIN
     Indication: Post procedural inflammation
     Dosage: UNK UNK, TID
     Route: 048
     Dates: start: 20230414, end: 20230418

REACTIONS (4)
  - Ureterolithiasis [Recovered/Resolved]
  - Pyelonephritis acute [Recovered/Resolved]
  - Influenza like illness [Recovered/Resolved]
  - Tooth impacted [Recovered/Resolved]

NARRATIVE: CASE EVENT DATE: 20221211
